FAERS Safety Report 17008238 (Version 3)
Quarter: 2020Q1

REPORT INFORMATION
  Report Type: Spontaneous
  Country: US (occurrence: US)
  Receive Date: 20191108
  Receipt Date: 20200120
  Transmission Date: 20200409
  Serious: No
  Sender: FDA-Public Use
  Company Number: US-GLAXOSMITHKLINE-US2019198427

PATIENT
  Age: 19 Year
  Sex: Female

DRUGS (1)
  1. BENLYSTA [Suspect]
     Active Substance: BELIMUMAB
     Indication: PRODUCT USED FOR UNKNOWN INDICATION
     Dosage: 200 MG, WE
     Route: 058

REACTIONS (5)
  - Injection site haemorrhage [Unknown]
  - Wrong technique in device usage process [Unknown]
  - Product complaint [Unknown]
  - Injection site pain [Unknown]
  - Overdose [Unknown]

NARRATIVE: CASE EVENT DATE: 20191029
